FAERS Safety Report 21094470 (Version 1)
Quarter: 2022Q3

REPORT INFORMATION
  Report Type: Spontaneous
  Country: US (occurrence: None)
  Receive Date: 20220716
  Receipt Date: 20220716
  Transmission Date: 20221027
  Serious: Yes (Hospitalization)
  Sender: FDA-Public Use
  Company Number: None

PATIENT
  Age: 71 Year
  Sex: Male

DRUGS (2)
  1. FLUOROURACIL [Suspect]
     Active Substance: FLUOROURACIL
     Indication: Product used for unknown indication
     Dates: end: 20220705
  2. CISPLATIN [Suspect]
     Active Substance: CISPLATIN
     Dates: end: 20220701

REACTIONS (5)
  - Decreased appetite [None]
  - Nausea [None]
  - Vomiting [None]
  - Diarrhoea [None]
  - Hypophagia [None]

NARRATIVE: CASE EVENT DATE: 20220705
